FAERS Safety Report 9998324 (Version 1)
Quarter: 2014Q1

REPORT INFORMATION
  Report Type: Report from Study
  Country: IT (occurrence: IT)
  Receive Date: 20140312
  Receipt Date: 20140312
  Transmission Date: 20141002
  Serious: Yes (Hospitalization)
  Sender: FDA-Public Use
  Company Number: IT-ROCHE-1359241

PATIENT
  Age: 50 Year
  Sex: 0

DRUGS (3)
  1. BEVACIZUMAB [Suspect]
     Indication: OVARIAN EPITHELIAL CANCER
     Dosage: LAST DOSE PRIOR TO EVENT ON 03/FEB/2014
     Route: 065
     Dates: start: 20140203
  2. CARBOPLATIN [Suspect]
     Indication: OVARIAN EPITHELIAL CANCER
     Dosage: LAST DOSE PRIOR TO EVENT ON 03/FEB/2014
     Route: 065
     Dates: start: 20140203
  3. PACLITAXEL [Suspect]
     Indication: OVARIAN EPITHELIAL CANCER
     Dosage: LAST DOSE PRIOR TO EVENT ON 03/FEB/2014
     Route: 065
     Dates: start: 20140203

REACTIONS (1)
  - Urticaria [Recovered/Resolved]
